FAERS Safety Report 7603266-X (Version None)
Quarter: 2011Q3

REPORT INFORMATION
  Report Type: 
  Country: None (occurrence: None)
  Receive Date: 20110712
  Receipt Date: 20110701
  Transmission Date: 20111222
  Serious: Yes (Hospitalization)
  Sender: FDA-Public Use
  Company Number: FR-JNJFOC-20110702826

PATIENT
  Sex: Male

DRUGS (8)
  1. IMOVANE [Suspect]
     Indication: PRODUCT USED FOR UNKNOWN INDICATION
     Route: 048
  2. MEMANTINE HYDROCHLORIDE [Suspect]
     Indication: DEMENTIA ALZHEIMER'S TYPE
     Route: 048
     Dates: end: 20110316
  3. ATHYMIL [Suspect]
     Indication: PRODUCT USED FOR UNKNOWN INDICATION
     Route: 048
  4. AMLODIPINE [Concomitant]
  5. ACETAMINOPHEN AND TRAMADOL HCL [Suspect]
     Indication: PRODUCT USED FOR UNKNOWN INDICATION
     Route: 048
  6. DIPIPERON [Suspect]
     Indication: DEMENTIA ALZHEIMER'S TYPE
     Route: 048
  7. DIPIPERON [Suspect]
     Route: 048
     Dates: end: 20110316
  8. LASIX [Concomitant]

REACTIONS (2)
  - SOMNOLENCE [None]
  - FALL [None]
